FAERS Safety Report 5379946-6 (Version None)
Quarter: 2007Q3

REPORT INFORMATION
  Report Type: 
  Country: None (occurrence: None)
  Receive Date: 20070706
  Receipt Date: 20070622
  Transmission Date: 20080115
  Serious: Yes (Other)
  Sender: FDA-Public Use
  Company Number: JP-PFIZER INC-2007052559

PATIENT
  Age: 28 Year
  Sex: Male

DRUGS (7)
  1. HALCION [Suspect]
     Dosage: DAILY DOSE:.25MG
     Route: 048
  2. TOLEDOMIN [Suspect]
     Route: 048
  3. DEPAKENE [Concomitant]
     Route: 048
  4. ABILIFY [Concomitant]
     Route: 048
  5. ROHYPNOL [Concomitant]
     Route: 048
  6. PAXIL [Concomitant]
     Route: 048
  7. LENDORMIN [Concomitant]
     Route: 048

REACTIONS (1)
  - TESTICULAR PAIN [None]
